FAERS Safety Report 5041221-7 (Version None)
Quarter: 2006Q3

REPORT INFORMATION
  Report Type: 
  Country: None (occurrence: None)
  Receive Date: 20060703
  Receipt Date: 20060607
  Transmission Date: 20061208
  Serious: Yes (Life-Threatening, Other)
  Sender: FDA-Public Use
  Company Number: EG-GLAXOSMITHKLINE-B0427628A

PATIENT
  Age: 35 Year
  Sex: Male
  Weight: 100 kg

DRUGS (1)
  1. FORTUM [Suspect]
     Indication: SKIN GRAFT
     Route: 065

REACTIONS (11)
  - ANAPHYLACTIC SHOCK [None]
  - BRADYCARDIA [None]
  - BRAIN OEDEMA [None]
  - CEREBRAL ATROPHY [None]
  - CYANOSIS [None]
  - DEMENTIA [None]
  - DRUG HYPERSENSITIVITY [None]
  - HYPOTENSION [None]
  - PLEURAL EFFUSION [None]
  - PULMONARY OEDEMA [None]
  - RESPIRATORY DISTRESS [None]
